FAERS Safety Report 11411021 (Version 2)
Quarter: 2015Q3

REPORT INFORMATION
  Report Type: Spontaneous
  Country: US (occurrence: US)
  Receive Date: 20150821
  Receipt Date: 20150903
  Transmission Date: 20151125
  Serious: No
  Sender: FDA-Public Use
  Company Number: US-ELI_LILLY_AND_COMPANY-US201002006755

PATIENT
  Sex: Female

DRUGS (4)
  1. HUMULIN N [Suspect]
     Active Substance: INSULIN HUMAN
     Dosage: 56 U, EACH MORNING
     Dates: start: 200901
  2. LANTUS [Concomitant]
     Active Substance: INSULIN GLARGINE
     Dosage: UNK, UNK
     Dates: start: 200406, end: 200901
  3. HUMALOG [Suspect]
     Active Substance: INSULIN LISPRO
     Dates: start: 200406, end: 200901
  4. HUMULIN R [Suspect]
     Active Substance: INSULIN HUMAN
     Dosage: 10 U, 3/D
     Dates: start: 200901

REACTIONS (10)
  - Depressed mood [Unknown]
  - Hypersensitivity [Unknown]
  - Gait disturbance [Unknown]
  - Dizziness [Unknown]
  - Dyspnoea [Unknown]
  - Memory impairment [Unknown]
  - Limb discomfort [Recovered/Resolved]
  - Chest discomfort [Unknown]
  - Mental impairment [Unknown]
  - Hypersomnia [Unknown]

NARRATIVE: CASE EVENT DATE: 2009
